FAERS Safety Report 8062143-3 (Version None)
Quarter: 2012Q1

REPORT INFORMATION
  Report Type: 
  Country: None (occurrence: None)
  Receive Date: 20120123
  Receipt Date: 20120112
  Transmission Date: 20120608
  Serious: Yes (Other)
  Sender: FDA-Public Use
  Company Number: US-MYLANLABS-2012S1001150

PATIENT
  Sex: Female
  Weight: 74.84 kg

DRUGS (3)
  1. TRAZODONE HCL [Concomitant]
     Indication: ANXIETY
     Route: 048
  2. ALPRAZOLAM [Suspect]
     Indication: ANXIETY
     Route: 048
  3. ADDERALL 5 [Concomitant]
     Route: 048
     Dates: start: 20030101

REACTIONS (6)
  - VOMITING [None]
  - JOINT STIFFNESS [None]
  - SUICIDAL IDEATION [None]
  - DEPRESSION [None]
  - DRUG WITHDRAWAL SYNDROME [None]
  - DEPENDENCE [None]
